FAERS Safety Report 6996708-4 (Version None)
Quarter: 2010Q3

REPORT INFORMATION
  Report Type: 
  Country: None (occurrence: None)
  Receive Date: 20100918
  Receipt Date: 20090901
  Transmission Date: 20110219
  Serious: Yes (Other)
  Sender: FDA-Public Use
  Company Number: US-WYE-H10025209

PATIENT
  Age: 65 Year
  Sex: Female

DRUGS (5)
  1. PRISTIQ [Suspect]
     Indication: DEPRESSION
     Dosage: ^HALF OF A 50 MG TABLET FOR 1ST DOSE^
     Route: 048
     Dates: start: 20090629, end: 20090629
  2. PRISTIQ [Suspect]
     Dosage: ^A QUARTER OF A 50 MG TABLET^
     Route: 048
     Dates: start: 20090701
  3. SYNTHROID [Concomitant]
     Indication: HYPOTHYROIDISM
  4. DIAZEPAM [Concomitant]
     Indication: ANXIETY
     Dosage: 5 MG AS NEEDED
  5. BENICAR [Concomitant]
     Indication: HYPERTENSION

REACTIONS (6)
  - ANXIETY [None]
  - CONDITION AGGRAVATED [None]
  - DIZZINESS [None]
  - HYPERTENSION [None]
  - PALPITATIONS [None]
  - THINKING ABNORMAL [None]
